FAERS Safety Report 15733926 (Version 5)
Quarter: 2021Q1

REPORT INFORMATION
  Report Type: Spontaneous
  Country: US (occurrence: US)
  Receive Date: 20181218
  Receipt Date: 20210218
  Transmission Date: 20210419
  Serious: Yes (Hospitalization)
  Sender: FDA-Public Use
  Company Number: US-PFIZER INC-2018517237

PATIENT
  Age: 72 Year
  Sex: Female

DRUGS (3)
  1. LYRICA [Suspect]
     Active Substance: PREGABALIN
     Indication: DIABETIC NEUROPATHY
     Dosage: 400 MG, DAILY
  2. LYRICA [Suspect]
     Active Substance: PREGABALIN
     Dosage: 200 UNK, 2X/DAY
  3. TYNOL [Concomitant]
     Indication: PRURITUS
     Dosage: UNK [2 OR 3 A DAY]

REACTIONS (10)
  - Pain [Not Recovered/Not Resolved]
  - Impaired driving ability [Unknown]
  - Panic reaction [Unknown]
  - Daydreaming [Unknown]
  - Hypoacusis [Unknown]
  - Hypertension [Unknown]
  - Off label use [Unknown]
  - Therapeutic product effect decreased [Unknown]
  - Paraesthesia [Unknown]
  - Oropharyngeal pain [Unknown]
